FAERS Safety Report 18338170 (Version 1)
Quarter: 2020Q4

REPORT INFORMATION
  Report Type: Spontaneous
  Country: US (occurrence: US)
  Receive Date: 20201001
  Receipt Date: 20201001
  Transmission Date: 20210113
  Serious: No
  Sender: FDA-Public Use
  Company Number: None

PATIENT
  Age: 62 Year
  Sex: Female
  Weight: 69.75 kg

DRUGS (8)
  1. OFEV [Concomitant]
     Active Substance: NINTEDANIB
  2. MYCOPHENOLATE MOFETIL. [Concomitant]
     Active Substance: MYCOPHENOLATE MOFETIL
  3. PLENVU [Suspect]
     Active Substance: ASCORBIC ACID\POLYETHYLENE GLYCOL 3350\POTASSIUM CHLORIDE\SODIUM ASCORBATE\SODIUM CHLORIDE\SODIUM SULFATE
     Indication: COLONOSCOPY
     Dosage: ?          QUANTITY:1 UNIT OF TWO DOSES;OTHER FREQUENCY:ONE TIME PREP;?
     Route: 048
     Dates: start: 20200928, end: 20200928
  4. ESOMEPRAZOLE MAGNESIUM. [Concomitant]
     Active Substance: ESOMEPRAZOLE MAGNESIUM
  5. IBUPROFEN. [Concomitant]
     Active Substance: IBUPROFEN
  6. LEVOTHYROXINE. [Concomitant]
     Active Substance: LEVOTHYROXINE
  7. VALSARTAN. [Concomitant]
     Active Substance: VALSARTAN
  8. EPICERAM EMULSION [Concomitant]

REACTIONS (4)
  - Nausea [None]
  - Abdominal pain upper [None]
  - Vomiting [None]
  - Product taste abnormal [None]

NARRATIVE: CASE EVENT DATE: 20200928
